FAERS Safety Report 23547536 (Version 1)
Quarter: 2024Q1

REPORT INFORMATION
  Report Type: Spontaneous
  Country: JO (occurrence: None)
  Receive Date: 20240221
  Receipt Date: 20240221
  Transmission Date: 20240410
  Serious: Yes (Hospitalization, Other)
  Sender: FDA-Public Use
  Company Number: JO-Unichem Pharmaceuticals (USA) Inc-UCM202402-000151

PATIENT
  Age: 65 Year
  Sex: Male

DRUGS (2)
  1. AMIODARONE HYDROCHLORIDE [Suspect]
     Active Substance: AMIODARONE HYDROCHLORIDE
     Indication: Atrial fibrillation
     Dosage: UNKNOWN
  2. COLCHICINE [Concomitant]
     Active Substance: COLCHICINE
     Indication: Product used for unknown indication
     Dosage: UNKNOWN

REACTIONS (5)
  - Pulmonary hypertension [Recovered/Resolved]
  - Haemodynamic instability [Recovered/Resolved]
  - Pyrexia [Recovered/Resolved]
  - Pulmonary toxicity [Unknown]
  - Drug effective for unapproved indication [Unknown]
